FAERS Safety Report 6329923-3 (Version None)
Quarter: 2009Q3

REPORT INFORMATION
  Report Type: 
  Country: None (occurrence: None)
  Receive Date: 20090825
  Receipt Date: 20090810
  Transmission Date: 20100115
  Serious: Yes (Other)
  Sender: FDA-Public Use
  Company Number: RENA-1000523

PATIENT
  Age: 30 Month
  Sex: Female

DRUGS (4)
  1. RENAGEL [Suspect]
     Indication: HYPERPHOSPHATAEMIA
     Dosage: 200 MG/KG, QD, ORAL
     Route: 048
  2. CALCIUM CARBONATE [Suspect]
     Indication: HYPERPHOSPHATAEMIA
     Dosage: 200 MG/KG, QD, ORAL
     Route: 048
  3. VITAMIN D3 [Concomitant]
  4. ALFACALCIDOL (ALFACALCIDOL) [Concomitant]

REACTIONS (6)
  - ANAEMIA [None]
  - DRUG INEFFECTIVE [None]
  - HYPERPHOSPHATAEMIA [None]
  - OSTEONECROSIS [None]
  - PERITONEAL DIALYSIS [None]
  - RENAL OSTEODYSTROPHY [None]
